FAERS Safety Report 11311689 (Version 1)
Quarter: 2015Q3

REPORT INFORMATION
  Report Type: Spontaneous
  Country: US (occurrence: None)
  Receive Date: 20150724
  Receipt Date: 20150724
  Transmission Date: 20151125
  Serious: No
  Sender: FDA-Public Use
  Company Number: None

PATIENT
  Age: 92 Year
  Sex: Female

DRUGS (7)
  1. SODIUM CHLORIDE. [Concomitant]
     Active Substance: SODIUM CHLORIDE
  2. CEFEPIME [Concomitant]
     Active Substance: CEFEPIME HYDROCHLORIDE
  3. VANCOMYCIN [Concomitant]
     Active Substance: VANCOMYCIN
  4. CALCIUM GLUCONATE. [Concomitant]
     Active Substance: CALCIUM GLUCONATE
  5. INSULIN ASPART [Suspect]
     Active Substance: INSULIN ASPART
     Indication: HYPERKALAEMIA
     Dosage: 10 UNITS X 2
     Route: 042
     Dates: start: 20150331, end: 20150331
  6. DEXTROSE 5% [Concomitant]
     Active Substance: DEXTROSE
  7. SODIUM POLYSTYRENE SULFONATE. [Concomitant]
     Active Substance: SODIUM POLYSTYRENE SULFONATE

REACTIONS (5)
  - Blood creatinine increased [None]
  - Hypernatraemia [None]
  - Hyperkalaemia [None]
  - Electrolyte imbalance [None]
  - Mental status changes [None]

NARRATIVE: CASE EVENT DATE: 20150331
